FAERS Safety Report 13881164 (Version 2)
Quarter: 2017Q4

REPORT INFORMATION
  Report Type: Report from Study
  Country: US (occurrence: US)
  Receive Date: 20170818
  Receipt Date: 20171006
  Transmission Date: 20180320
  Serious: Yes (Other)
  Sender: FDA-Public Use
  Company Number: US-JNJFOC-20170815735

PATIENT
  Sex: Female

DRUGS (3)
  1. IMBRUVICA [Suspect]
     Active Substance: IBRUTINIB
     Indication: CHRONIC LYMPHOCYTIC LEUKAEMIA
     Route: 048
     Dates: start: 20170505
  2. IMBRUVICA [Suspect]
     Active Substance: IBRUTINIB
     Indication: CHRONIC LYMPHOCYTIC LEUKAEMIA
     Route: 048
  3. HYDREA [Concomitant]
     Active Substance: HYDROXYUREA

REACTIONS (5)
  - Eyelid bleeding [Unknown]
  - Eyelid injury [Unknown]
  - Eyelid oedema [Unknown]
  - Eyelid exfoliation [Unknown]
  - Eyelid skin dryness [Unknown]
